FAERS Safety Report 21309550 (Version 1)
Quarter: 2022Q3

REPORT INFORMATION
  Report Type: Spontaneous
  Country: US (occurrence: US)
  Receive Date: 20220908
  Receipt Date: 20220908
  Transmission Date: 20221027
  Serious: No
  Sender: FDA-Public Use
  Company Number: US-BRAINTREE LABORATORIES, INC.-2022BTE00620

PATIENT
  Age: 72 Year
  Sex: Female

DRUGS (4)
  1. SUPREP BOWEL PREP [Suspect]
     Active Substance: MAGNESIUM SULFATE\POTASSIUM SULFATE\SODIUM SULFATE
     Indication: Colonoscopy
     Dosage: 1 X 6 OZ. BOTTLE, 1X
     Route: 048
     Dates: start: 20220704, end: 20220704
  2. OMEPRAZOLE [Concomitant]
     Active Substance: OMEPRAZOLE
     Dosage: 20 MG, 1X/DAY
     Route: 048
  3. AMBIEN [Concomitant]
     Active Substance: ZOLPIDEM TARTRATE
     Dosage: 5 MG, 1X/DAY AT BEDTIME
     Route: 048
  4. SUCRALFATE [Concomitant]
     Active Substance: SUCRALFATE
     Dosage: UNK

REACTIONS (8)
  - Cold sweat [Recovered/Resolved]
  - Asthenia [Recovered/Resolved]
  - Gastric disorder [Not Recovered/Not Resolved]
  - Dizziness [Recovered/Resolved]
  - Retching [Recovered/Resolved]
  - Vomiting [Recovered/Resolved]
  - Discomfort [Recovered/Resolved]
  - Nausea [Recovered/Resolved]

NARRATIVE: CASE EVENT DATE: 20220704
